FAERS Safety Report 20499391 (Version 1)
Quarter: 2022Q1

REPORT INFORMATION
  Report Type: Spontaneous
  Country: US (occurrence: US)
  Receive Date: 20220222
  Receipt Date: 20220222
  Transmission Date: 20220423
  Serious: No
  Sender: FDA-Public Use
  Company Number: US-AMGEN-USASP2022030591

PATIENT
  Age: 71 Year
  Sex: Female

DRUGS (2)
  1. OTEZLA [Suspect]
     Active Substance: APREMILAST
     Indication: Psoriasis
     Dosage: STARTED PACK
     Route: 048
     Dates: start: 202201
  2. OTEZLA [Suspect]
     Active Substance: APREMILAST
     Dosage: 15 MILLIGRAM, BID
     Route: 048
     Dates: start: 2022

REACTIONS (3)
  - Weight decreased [Unknown]
  - Diarrhoea [Recovering/Resolving]
  - Wrong technique in product usage process [Unknown]

NARRATIVE: CASE EVENT DATE: 20220101
